FAERS Safety Report 4653235-7 (Version None)
Quarter: 2005Q2

REPORT INFORMATION
  Report Type: 
  Country: None (occurrence: None)
  Receive Date: 20050503
  Receipt Date: 20050420
  Transmission Date: 20051028
  Serious: Yes (Other)
  Sender: FDA-Public Use
  Company Number: 2005063800

PATIENT
  Age: 61 Year
  Sex: Male

DRUGS (5)
  1. EPIRUBICIN [Suspect]
     Indication: LYMPHOMA
     Dosage: 50 MG (CYLICAL), INTRAVENOUS
     Route: 042
  2. CYCLOPHOSPHAMIDE [Suspect]
     Indication: LYMPHOMA
     Dosage: 500 MG (CYCLICAL), INTRAVENOUS
     Route: 042
  3. VINCRISTINE SULFATE [Suspect]
     Indication: LYMPHOMA
     Dosage: 1.4 MG(CYCLICAL)
  4. PREDNISONE [Suspect]
     Indication: LYMPHOMA
     Dosage: (CYCLICAL), INTRAVENOUS
     Route: 042
  5. RITUXIMAB (RITUXIMAB) [Suspect]
     Indication: LYMPHOMA
     Dosage: (CYCLICAL), INTRAVENOUS
     Route: 042

REACTIONS (3)
  - AMNESIA [None]
  - CONDITION AGGRAVATED [None]
  - DEMENTIA [None]
